FAERS Safety Report 6236880-7 (Version None)
Quarter: 2009Q2

REPORT INFORMATION
  Report Type: 
  Country: None (occurrence: None)
  Receive Date: 20090619
  Receipt Date: 20090607
  Transmission Date: 20091009
  Serious: Yes (Other)
  Sender: FDA-Public Use
  Company Number: US-JNJFOC-20090602949

PATIENT
  Sex: Female

DRUGS (4)
  1. MONISTAT 1 UNSPECIFIED [Suspect]
     Route: 067
  2. MONISTAT 1 UNSPECIFIED [Suspect]
     Indication: FUNGAL INFECTION
     Route: 067
  3. MONISTAT 1 UNSPECIFIED [Suspect]
     Route: 061
  4. MONISTAT 1 UNSPECIFIED [Suspect]
     Route: 061

REACTIONS (2)
  - PAIN [None]
  - SWELLING [None]
